FAERS Safety Report 7319766-6 (Version None)
Quarter: 2011Q1

REPORT INFORMATION
  Report Type: 
  Country: None (occurrence: None)
  Receive Date: 20110228
  Receipt Date: 20100914
  Transmission Date: 20110831
  Serious: No
  Sender: FDA-Public Use
  Company Number: A0881109A

PATIENT

DRUGS (2)
  1. LAMICTAL [Suspect]
     Dosage: 100MG PER DAY
     Route: 048
  2. UNKNOWN [Concomitant]

REACTIONS (3)
  - RASH PUSTULAR [None]
  - BLISTER [None]
  - SWELLING [None]
